FAERS Safety Report 9390377 (Version 2)
Quarter: 2013Q4

REPORT INFORMATION
  Report Type: Spontaneous
  Country: PH (occurrence: PH)
  Receive Date: 20130709
  Receipt Date: 20131212
  Transmission Date: 20140711
  Serious: Yes (Death, Hospitalization)
  Sender: FDA-Public Use
  Company Number: PH-MERCK-1307PHL003102

PATIENT
  Age: 69 Year
  Sex: Female

DRUGS (1)
  1. JANUMET [Suspect]
     Dosage: 1 DF, QD (ONE TABLET)
     Route: 048
     Dates: start: 20130112

REACTIONS (3)
  - Diabetic complication [Fatal]
  - Hypertension [Unknown]
  - Inappropriate schedule of drug administration [Unknown]
